FAERS Safety Report 17819647 (Version 1)
Quarter: 2020Q2

REPORT INFORMATION
  Report Type: Spontaneous
  Country: US (occurrence: US)
  Receive Date: 20200524
  Receipt Date: 20200524
  Transmission Date: 20200714
  Serious: Yes (Hospitalization)
  Sender: FDA-Public Use
  Company Number: US-CADILA HEALTHCARE LIMITED-US-ZYDUS-050906

PATIENT

DRUGS (1)
  1. BACLOFEN. [Suspect]
     Active Substance: BACLOFEN
     Indication: PRODUCT USED FOR UNKNOWN INDICATION
     Dosage: 20 MILLIGRAM
     Route: 048

REACTIONS (6)
  - Encephalopathy [Recovering/Resolving]
  - Bradycardia [Recovered/Resolved]
  - Accidental overdose [Unknown]
  - Respiratory failure [Recovered/Resolved]
  - Coma [Recovered/Resolved]
  - Hypotonia [Recovered/Resolved]
